FAERS Safety Report 5548078-6 (Version None)
Quarter: 2007Q4

REPORT INFORMATION
  Report Type: 
  Country: None (occurrence: None)
  Receive Date: 20071128
  Receipt Date: 20070414
  Transmission Date: 20080405
  Serious: Yes (Other)
  Sender: FDA-Public Use
  Company Number: 2007019710

PATIENT
  Sex: Male
  Weight: 98.4 kg

DRUGS (5)
  1. LIPITOR [Suspect]
     Indication: HYPERCHOLESTEROLAEMIA
     Dosage: 10 MG (10 MG, 1 IN 1 D), ORAL
     Route: 048
     Dates: start: 19990825, end: 20061211
  2. TRICOR [Suspect]
     Indication: HYPERTRIGLYCERIDAEMIA
     Dosage: 145 MG (145 MG, QD: EVERY DAY), ORAL
     Route: 048
     Dates: start: 20040330, end: 20061211
  3. ACEBUTOLOL [Concomitant]
  4. PRILOSEC [Concomitant]
  5. MEVACOR [Concomitant]

REACTIONS (5)
  - ASTHENIA [None]
  - MYALGIA [None]
  - MYOPATHY [None]
  - NEUROPATHY [None]
  - RHABDOMYOLYSIS [None]
